FAERS Safety Report 20119249 (Version 1)
Quarter: 2021Q4

REPORT INFORMATION
  Report Type: Spontaneous
  Country: PL (occurrence: None)
  Receive Date: 20211126
  Receipt Date: 20211126
  Transmission Date: 20220303
  Serious: Yes (Life-Threatening, Other)
  Sender: FDA-Public Use
  Company Number: 2021A821586

PATIENT
  Age: 54 Year
  Sex: Male

DRUGS (1)
  1. TICAGRELOR [Suspect]
     Active Substance: TICAGRELOR
     Indication: Acute myocardial infarction
     Route: 048
     Dates: start: 20211020, end: 20211020

REACTIONS (2)
  - Defect conduction intraventricular [Recovered/Resolved]
  - Atrioventricular block second degree [Unknown]

NARRATIVE: CASE EVENT DATE: 20211020
